FAERS Safety Report 5225919-3 (Version None)
Quarter: 2007Q1

REPORT INFORMATION
  Report Type: 
  Country: None (occurrence: None)
  Receive Date: 20070201
  Receipt Date: 20070123
  Transmission Date: 20070707
  Serious: Yes (Hospitalization)
  Sender: FDA-Public Use
  Company Number: US-JNJFOC-20061203816

PATIENT
  Sex: Male
  Weight: 78.93 kg

DRUGS (4)
  1. REMICADE [Suspect]
     Route: 042
  2. REMICADE [Suspect]
     Indication: CROHN'S DISEASE
     Route: 042
  3. IMURAN [Concomitant]
  4. ASACOL [Concomitant]

REACTIONS (4)
  - EAR HAEMORRHAGE [None]
  - HEADACHE [None]
  - INFECTION [None]
  - PYREXIA [None]
